FAERS Safety Report 7568256 (Version 8)
Quarter: 2014Q1

REPORT INFORMATION
  Report Type: Spontaneous
  Country: US (occurrence: US)
  Receive Date: 20100831
  Receipt Date: 20140226
  Transmission Date: 20141002
  Serious: Yes (Hospitalization, Other)
  Sender: FDA-Public Use
  Company Number: US-US-EMD SERONO, INC.-7012090

PATIENT
  Age: 43 Year
  Sex: Female
  Weight: 65 kg

DRUGS (12)
  1. REBIF [Suspect]
     Indication: MULTIPLE SCLEROSIS
     Route: 058
     Dates: start: 20100607, end: 201007
  2. REBIF [Suspect]
     Route: 058
     Dates: start: 201007, end: 20101201
  3. REBIF [Suspect]
     Route: 058
     Dates: start: 20110112
  4. OMEPRAZOLE [Concomitant]
     Indication: GASTROOESOPHAGEAL REFLUX DISEASE
     Route: 048
     Dates: start: 2006
  5. CELEXA [Concomitant]
     Indication: FATIGUE
     Route: 048
     Dates: start: 2001
  6. OXYBUTYNIN [Concomitant]
     Indication: HYPERTONIC BLADDER
     Dates: start: 201002
  7. TIZANIDINE [Concomitant]
     Indication: MUSCULAR WEAKNESS
     Dates: start: 2010
  8. VITAMIN B12 [Concomitant]
     Indication: PRODUCT USED FOR UNKNOWN INDICATION
  9. IRON [Concomitant]
     Indication: PRODUCT USED FOR UNKNOWN INDICATION
  10. PREVACID [Concomitant]
     Indication: PRODUCT USED FOR UNKNOWN INDICATION
  11. NAPROXEN [Concomitant]
     Indication: PREMEDICATION
  12. TYLENOL [Concomitant]
     Indication: PREMEDICATION

REACTIONS (8)
  - Gastrointestinal stromal tumour [Recovered/Resolved]
  - Carcinoid tumour of the duodenum [Recovered/Resolved]
  - Pancreatic carcinoma [Recovering/Resolving]
  - Abdominal infection [Recovered/Resolved]
  - Intestinal cyst [Not Recovered/Not Resolved]
  - Gastrointestinal inflammation [Not Recovered/Not Resolved]
  - Dehydration [Recovering/Resolving]
  - Scar [Not Recovered/Not Resolved]
